FAERS Safety Report 6833446-2 (Version None)
Quarter: 2010Q3

REPORT INFORMATION
  Report Type: 
  Country: None (occurrence: None)
  Receive Date: 20100712
  Receipt Date: 20070323
  Transmission Date: 20110219
  Serious: No
  Sender: FDA-Public Use
  Company Number: US-PFIZER INC-2007025209

PATIENT
  Sex: Female
  Weight: 83.9 kg

DRUGS (4)
  1. CHANTIX [Suspect]
     Indication: SMOKING CESSATION THERAPY
     Dates: start: 20061201
  2. VITAMINS [Concomitant]
  3. TAPAZOLE [Concomitant]
  4. THYROID TAB [Concomitant]

REACTIONS (1)
  - SOMNOLENCE [None]
